FAERS Safety Report 6479564-2 (Version None)
Quarter: 2009Q4

REPORT INFORMATION
  Report Type: 
  Country: None (occurrence: None)
  Receive Date: 20091207
  Receipt Date: 20091207
  Transmission Date: 20100525
  Serious: Yes (Hospitalization)
  Sender: FDA-Public Use
  Company Number: None

PATIENT
  Age: 55 Year
  Sex: Female
  Weight: 88.4514 kg

DRUGS (1)
  1. CLONAZEPAM [Suspect]
     Indication: ANXIETY
     Dosage: 1MG TWICE DAILY PO
     Route: 048
     Dates: start: 20091201, end: 20091203

REACTIONS (23)
  - AGGRESSION [None]
  - AGITATION [None]
  - ANXIETY [None]
  - CHEST DISCOMFORT [None]
  - CONFUSIONAL STATE [None]
  - CRYING [None]
  - DRUG HYPERSENSITIVITY [None]
  - DYSPHEMIA [None]
  - FATIGUE [None]
  - FEAR [None]
  - HEADACHE [None]
  - HEART RATE INCREASED [None]
  - INSOMNIA [None]
  - IRRITABILITY [None]
  - MEMORY IMPAIRMENT [None]
  - MOOD ALTERED [None]
  - PANIC DISORDER [None]
  - PRODUCT SUBSTITUTION ISSUE [None]
  - PRURITUS [None]
  - REACTION TO DRUG EXCIPIENTS [None]
  - RESPIRATORY RATE INCREASED [None]
  - SCREAMING [None]
  - TREMOR [None]
